FAERS Safety Report 5779700-7 (Version None)
Quarter: 2008Q2

REPORT INFORMATION
  Report Type: 
  Country: None (occurrence: None)
  Receive Date: 20080617
  Receipt Date: 20080605
  Transmission Date: 20081010
  Serious: Yes (Disabling)
  Sender: FDA-Public Use
  Company Number: 2008-178653-NL

PATIENT
  Age: 61 Year
  Sex: Male

DRUGS (6)
  1. DEXAMETHASONE [Suspect]
     Indication: PROPHYLAXIS OF NAUSEA AND VOMITING
     Dosage: 4 MG BID ORAL
     Route: 048
     Dates: start: 20071219, end: 20080101
  2. CISPLATIN [Suspect]
     Indication: OESOPHAGEAL CARCINOMA
     Dosage: INTRAVENOUS (NOS)
     Route: 042
     Dates: start: 20071219, end: 20071219
  3. CAPECITABINE [Concomitant]
  4. DOMPERIDONE [Concomitant]
  5. EPIRUBICIN [Concomitant]
  6. GRANISETRON HCL [Concomitant]

REACTIONS (3)
  - HYPERGLYCAEMIC HYPEROSMOLAR NONKETOTIC SYNDROME [None]
  - LEG AMPUTATION [None]
  - PERIPHERAL ISCHAEMIA [None]
